FAERS Safety Report 6088999-1 (Version None)
Quarter: 2009Q1

REPORT INFORMATION
  Report Type: 
  Country: None (occurrence: None)
  Receive Date: 20090219
  Receipt Date: 20090219
  Transmission Date: 20090719
  Serious: Yes (Life-Threatening, Hospitalization)
  Sender: FDA-Public Use
  Company Number: None

PATIENT
  Sex: Male
  Weight: 83.9154 kg

DRUGS (2)
  1. METFORMIN HCL [Suspect]
     Indication: DIABETES MELLITUS
     Dosage: 1000 MG 2 PO
     Route: 048
  2. BYETTA [Concomitant]

REACTIONS (4)
  - DEHYDRATION [None]
  - ELECTROCARDIOGRAM CHANGE [None]
  - RENAL FAILURE [None]
  - VOMITING [None]
